FAERS Safety Report 7778745-5 (Version None)
Quarter: 2011Q3

REPORT INFORMATION
  Report Type: 
  Country: None (occurrence: None)
  Receive Date: 20110926
  Receipt Date: 20110916
  Transmission Date: 20111222
  Serious: Yes (Hospitalization, Other)
  Sender: FDA-Public Use
  Company Number: US-BAYER-2011-026672

PATIENT
  Age: 32 Year
  Sex: Female
  Weight: 97.506 kg

DRUGS (4)
  1. YASMIN [Suspect]
     Indication: PREMENSTRUAL SYNDROME
  2. YASMIN [Suspect]
  3. YASMIN [Suspect]
     Indication: ACNE
  4. YASMIN [Suspect]
     Indication: CONTRACEPTION
     Dosage: UNK
     Route: 048
     Dates: start: 20061101, end: 20090901

REACTIONS (9)
  - FEAR [None]
  - CHOLECYSTITIS CHRONIC [None]
  - EMOTIONAL DISTRESS [None]
  - GALLBLADDER DISORDER [None]
  - ANXIETY [None]
  - GASTROINTESTINAL DISORDER [None]
  - MENTAL DISORDER [None]
  - INJURY [None]
  - PAIN [None]
